FAERS Safety Report 4378137-5 (Version None)
Quarter: 2004Q2

REPORT INFORMATION
  Report Type: 
  Country: None (occurrence: None)
  Receive Date: 20040616
  Receipt Date: 20040610
  Transmission Date: 20050107
  Serious: Yes (Other)
  Sender: FDA-Public Use
  Company Number: US-BRISTOL-MYERS SQUIBB COMPANY-12611281

PATIENT
  Age: 77 Year
  Sex: Female
  Weight: 59 kg

DRUGS (8)
  1. CARBOPLATIN [Suspect]
     Indication: NON-SMALL CELL LUNG CANCER
     Dosage: DAY 1
     Route: 042
     Dates: start: 20001207, end: 20001207
  2. GEMCITABINE [Suspect]
     Indication: NON-SMALL CELL LUNG CANCER
     Route: 042
     Dates: start: 20001207, end: 20001207
  3. SYNTHROID [Concomitant]
  4. HYZAAR [Concomitant]
  5. LASIX [Concomitant]
  6. TYLENOL [Concomitant]
  7. COMPAZINE [Concomitant]
  8. POTASSIUM CHLORIDE [Concomitant]

REACTIONS (9)
  - ASTHENIA [None]
  - BLOOD CHLORIDE DECREASED [None]
  - BLOOD POTASSIUM DECREASED [None]
  - CHILLS [None]
  - DECREASED APPETITE [None]
  - DEPRESSION [None]
  - FATIGUE [None]
  - HAEMOPTYSIS [None]
  - PLATELET COUNT DECREASED [None]
